FAERS Safety Report 4270673-5 (Version None)
Quarter: 2004Q1

REPORT INFORMATION
  Report Type: 
  Country: None (occurrence: None)
  Receive Date: 20040114
  Receipt Date: 20040108
  Transmission Date: 20041129
  Serious: Yes (Hospitalization)
  Sender: FDA-Public Use
  Company Number: WAES 0401USA00658

PATIENT
  Sex: Male
  Weight: 62 kg

DRUGS (1)
  1. STROMECTOL [Suspect]
     Indication: FILARIASIS
     Route: 048
     Dates: start: 20030618, end: 20030618

REACTIONS (9)
  - BACK PAIN [None]
  - CHILLS [None]
  - DIARRHOEA [None]
  - DISCOMFORT [None]
  - FEELING COLD [None]
  - HEADACHE [None]
  - PYREXIA [None]
  - VERTIGO [None]
  - VOMITING [None]
